FAERS Safety Report 4737997-6 (Version None)
Quarter: 2005Q3

REPORT INFORMATION
  Report Type: 
  Country: None (occurrence: None)
  Receive Date: 20050805
  Receipt Date: 20050720
  Transmission Date: 20060218
  Serious: Yes (Hospitalization)
  Sender: FDA-Public Use
  Company Number: 216576

PATIENT
  Age: 57 Year
  Sex: Female
  Weight: 64.4 kg

DRUGS (9)
  1. AVASTIN [Suspect]
     Indication: COLORECTAL CANCER METASTATIC
     Dosage: 320 MG, Q2W, INTRAVENOUS
     Route: 042
     Dates: start: 20050517
  2. IRINOTECAN HCL [Suspect]
     Indication: COLORECTAL CANCER METASTATIC
     Dosage: 300 MG, Q2W, INTRAVENOUS
     Route: 042
     Dates: start: 20050517
  3. FLUOROURACIL [Suspect]
     Indication: COLORECTAL CANCER METASTATIC
     Dosage: 675 MG, Q2W, INTRAVENOUS
     Route: 042
     Dates: start: 20050517
  4. LEUCOVORIN CALCIUM [Suspect]
     Indication: COLORECTAL CANCER METASTATIC
     Dosage: 50  MG, Q2W, INTRAVENOUS
     Route: 042
     Dates: start: 20050517
  5. NEXIUM [Concomitant]
  6. MAGNESIUM SULFATE [Concomitant]
  7. COLOXYL (DOCUSATE SODIUM) [Concomitant]
  8. COVERSYL (PERINDOPRIL) [Concomitant]
  9. ACETAMINOPHEN [Concomitant]

REACTIONS (3)
  - DEEP VEIN THROMBOSIS [None]
  - ELECTROCARDIOGRAM ST SEGMENT ELEVATION [None]
  - PERICARDITIS [None]
